FAERS Safety Report 7990571-0 (Version None)
Quarter: 2011Q4

REPORT INFORMATION
  Report Type: 
  Country: None (occurrence: None)
  Receive Date: 20111219
  Receipt Date: 20110316
  Transmission Date: 20120403
  Serious: Yes (Other)
  Sender: FDA-Public Use
  Company Number: US-ASTRAZENECA-2011SE15022

PATIENT
  Age: 17312 Day
  Sex: Male

DRUGS (9)
  1. CRESTOR [Suspect]
     Route: 048
  2. GLYBURIDE [Suspect]
     Indication: TYPE 2 DIABETES MELLITUS
  3. LANTUS [Suspect]
     Indication: TYPE 2 DIABETES MELLITUS
  4. REGULAR INSULIN [Suspect]
     Indication: TYPE 2 DIABETES MELLITUS
  5. ASPIRIN [Concomitant]
     Dosage: LESS THAN OR EQUAL TO 100MG
  6. NIACIN [Concomitant]
  7. SAXAGLIPTIN CODE NOT BROKEN [Concomitant]
     Indication: TYPE 2 DIABETES MELLITUS
     Route: 048
     Dates: start: 20100806, end: 20101202
  8. SIMCOR [Suspect]
  9. METFORMIN HCL [Suspect]
     Indication: TYPE 2 DIABETES MELLITUS

REACTIONS (2)
  - MUSCULAR WEAKNESS [None]
  - MYALGIA [None]
